FAERS Safety Report 5477051-1 (Version None)
Quarter: 2007Q4

REPORT INFORMATION
  Report Type: 
  Country: None (occurrence: None)
  Receive Date: 20071004
  Receipt Date: 20070924
  Transmission Date: 20080405
  Serious: Yes (Death, Hospitalization, Other)
  Sender: FDA-Public Use
  Company Number: US-MERCK-0709USA01919

PATIENT
  Age: 53 Year
  Sex: Female
  Weight: 77 kg

DRUGS (10)
  1. ZOLINZA [Suspect]
     Indication: NON-HODGKIN'S LYMPHOMA
     Route: 048
     Dates: start: 20070314, end: 20070319
  2. ZOLINZA [Suspect]
     Route: 048
     Dates: start: 20070321, end: 20070326
  3. ZOLINZA [Suspect]
     Route: 048
     Dates: start: 20070413, end: 20070425
  4. ZOLINZA [Suspect]
     Route: 048
     Dates: start: 20070426, end: 20070429
  5. ZOLINZA [Suspect]
     Route: 048
     Dates: start: 20070502, end: 20070514
  6. CYTOXAN [Concomitant]
     Route: 048
  7. NEXAVAR [Concomitant]
     Route: 048
  8. PREDNISONE [Concomitant]
     Route: 065
  9. BUPHENYL [Concomitant]
     Route: 048
  10. RITUXAN [Concomitant]
     Route: 042

REACTIONS (4)
  - ALANINE AMINOTRANSFERASE INCREASED [None]
  - ASPARTATE AMINOTRANSFERASE INCREASED [None]
  - MUCOSAL INFLAMMATION [None]
  - NON-HODGKIN'S LYMPHOMA [None]
